FAERS Safety Report 25593576 (Version 2)
Quarter: 2025Q3

REPORT INFORMATION
  Report Type: Spontaneous
  Country: US (occurrence: US)
  Receive Date: 20250722
  Receipt Date: 20250812
  Transmission Date: 20251020
  Serious: No
  Sender: ALEXION PHARMACEUTICALS
  Company Number: US-AstraZeneca-CH-00913730AP

PATIENT
  Sex: Female

DRUGS (1)
  1. STRENSIQ [Suspect]
     Active Substance: ASFOTASE ALFA
     Indication: Hypophosphatasia
     Route: 065

REACTIONS (6)
  - Fracture [Unknown]
  - Laboratory test abnormal [Unknown]
  - Fatigue [Recovering/Resolving]
  - Arthralgia [Unknown]
  - Dysstasia [Recovering/Resolving]
  - Tooth loss [Unknown]
